FAERS Safety Report 12270195 (Version 2)
Quarter: 2016Q2

REPORT INFORMATION
  Report Type: Spontaneous
  Country: JP (occurrence: JP)
  Receive Date: 20160415
  Receipt Date: 20160417
  Transmission Date: 20160815
  Serious: Yes (Life-Threatening, Hospitalization, Disabling)
  Sender: FDA-Public Use
  Company Number: JP-009507513-1604JPN004521

PATIENT
  Age: 69 Year
  Sex: Female

DRUGS (27)
  1. METOCLOPRAMIDE. [Concomitant]
     Active Substance: METOCLOPRAMIDE
     Indication: PRODUCT USED FOR UNKNOWN INDICATION
     Dosage: 30 MG (10 MG, 3 IN 1 D)
     Route: 048
     Dates: start: 20070921
  2. DEXAMETHASONE. [Suspect]
     Active Substance: DEXAMETHASONE
     Dosage: 0.5 MG, QD
     Route: 065
     Dates: start: 20121205
  3. HUMALOG [Concomitant]
     Active Substance: INSULIN LISPRO
     Indication: PRODUCT USED FOR UNKNOWN INDICATION
     Dosage: 30 IU (10 IU, 3 IN 1 D)
     Route: 065
     Dates: start: 20121113
  4. NOVORIN [Concomitant]
     Indication: PRODUCT USED FOR UNKNOWN INDICATION
     Dosage: 5 TO 26 UNITS A DAY FROM MIDNIGHT TO NEXT MORNING
     Route: 065
     Dates: start: 20121213
  5. CRIZOTINIB [Suspect]
     Active Substance: CRIZOTINIB
     Indication: NON-SMALL CELL LUNG CANCER
     Dosage: 250 MG, QD
     Route: 048
     Dates: start: 20121030, end: 20121116
  6. LANTUS [Concomitant]
     Active Substance: INSULIN GLARGINE
     Indication: PRODUCT USED FOR UNKNOWN INDICATION
     Dosage: 20 TO 30 UNITS ONCE DAILY
     Route: 065
     Dates: start: 20121022, end: 20121213
  7. GASMOTIN [Concomitant]
     Active Substance: MOSAPRIDE CITRATE
     Indication: PRODUCT USED FOR UNKNOWN INDICATION
     Dosage: 15 MG (5 MG, 3 IN 1 DAY)
     Route: 048
     Dates: start: 20121018
  8. DIHYDROCODEINE PHOSPHATE [Concomitant]
     Active Substance: DIHYDROCODEINE PHOSPHATE
     Indication: PRODUCT USED FOR UNKNOWN INDICATION
     Dosage: UNKNOWN (10 MG, AS REQUIRED)
     Route: 048
     Dates: start: 20120504, end: 20121126
  9. JANUVIA [Concomitant]
     Active Substance: SITAGLIPTIN PHOSPHATE
     Indication: PRODUCT USED FOR UNKNOWN INDICATION
     Dosage: 100 MG, 1 IN 1 D
     Route: 048
     Dates: start: 20121211, end: 20121226
  10. MYSLEE [Concomitant]
     Active Substance: ZOLPIDEM TARTRATE
     Indication: PRODUCT USED FOR UNKNOWN INDICATION
     Dosage: UNKNOWN (2.5 MG, AS REQUIRED)
     Route: 048
     Dates: start: 20121122
  11. CRIZOTINIB [Suspect]
     Active Substance: CRIZOTINIB
     Dosage: 250 MG, QD
     Route: 048
     Dates: start: 20121204, end: 20130103
  12. CRIZOTINIB [Suspect]
     Active Substance: CRIZOTINIB
     Dosage: 250 MG, QD
     Route: 048
     Dates: start: 20130207, end: 20130515
  13. GASTER [Concomitant]
     Active Substance: FAMOTIDINE
     Indication: PRODUCT USED FOR UNKNOWN INDICATION
     Dosage: 40 MG (20 MG, 2 IN 1 D)
     Route: 048
     Dates: start: 20121005, end: 20121203
  14. MUCODYNE [Concomitant]
     Active Substance: CARBOCYSTEINE
     Indication: PRODUCT USED FOR UNKNOWN INDICATION
     Dosage: 1500 MG (500 MG, 3 IN 1 D)
     Route: 048
  15. HALCION [Concomitant]
     Active Substance: TRIAZOLAM
     Indication: PRODUCT USED FOR UNKNOWN INDICATION
     Dosage: UNKNOWN (0.25 MG, AS REQUIRED)
     Route: 048
     Dates: start: 20120504, end: 20121126
  16. LOXONIN [Concomitant]
     Active Substance: LOXOPROFEN SODIUM
     Indication: PRODUCT USED FOR UNKNOWN INDICATION
     Dosage: UNKNOWN (50 MG, AS REQUIRED)
     Route: 062
     Dates: start: 20121125
  17. OXYCONTIN [Concomitant]
     Active Substance: OXYCODONE HYDROCHLORIDE
     Indication: PRODUCT USED FOR UNKNOWN INDICATION
     Dosage: 5 MG, BID
     Route: 048
     Dates: start: 20120927, end: 20121116
  18. DEXAMETHASONE. [Suspect]
     Active Substance: DEXAMETHASONE
     Indication: PRODUCT USED FOR UNKNOWN INDICATION
     Dosage: 1 MG, BID
     Route: 048
     Dates: start: 20121108, end: 20121124
  19. DEXAMETHASONE. [Suspect]
     Active Substance: DEXAMETHASONE
     Dosage: 1 MG, QD
     Route: 065
     Dates: start: 20121127, end: 20121204
  20. CRIZOTINIB [Suspect]
     Active Substance: CRIZOTINIB
     Dosage: 250 DF, BID
     Route: 048
     Dates: start: 20130525, end: 20130829
  21. ASTOMIN [Concomitant]
     Active Substance: DIMEMORFAN
     Indication: PRODUCT USED FOR UNKNOWN INDICATION
     Dosage: 60 MG (20 MG, 3 IN 1 D)
     Route: 048
     Dates: start: 20080124, end: 20121121
  22. NOVAMIN (PROCHLORPERAZINE MESYLATE) [Concomitant]
     Indication: PRODUCT USED FOR UNKNOWN INDICATION
     Dosage: UNKNOWN (5 MG, AS REQUIRED)
     Route: 048
     Dates: start: 20120505
  23. LANSOPRAZOLE. [Concomitant]
     Active Substance: LANSOPRAZOLE
     Indication: PRODUCT USED FOR UNKNOWN INDICATION
     Dosage: UNKNOWN (30 MG, 1 IN 1 D)
     Route: 048
     Dates: start: 20121204, end: 20130209
  24. MEDICON (DEXTROMETHORPHAN HYDROBROMIDE) [Concomitant]
     Active Substance: DEXTROMETHORPHAN HYDROBROMIDE
     Indication: PRODUCT USED FOR UNKNOWN INDICATION
     Dosage: UNKNOWN (15 MG, 3 IN 1 D)
     Route: 048
     Dates: start: 20120424, end: 20121206
  25. URSO [Concomitant]
     Active Substance: URSODIOL
     Indication: PRODUCT USED FOR UNKNOWN INDICATION
     Dosage: 300 MG (100 MG, 3 IN 1 D)
     Route: 048
     Dates: start: 20121204
  26. CRESTOR [Concomitant]
     Active Substance: ROSUVASTATIN CALCIUM
     Indication: PRODUCT USED FOR UNKNOWN INDICATION
     Dosage: UNKNOWN (2.5 MG, 1 IN 1 D)
     Route: 048
     Dates: start: 20121216
  27. WYPAX [Concomitant]
     Active Substance: LORAZEPAM
     Indication: PRODUCT USED FOR UNKNOWN INDICATION
     Dosage: 1.5 MG (0.5 MG, 3 IN 1 D)
     Route: 048
     Dates: start: 20121121, end: 20130404

REACTIONS (5)
  - Vomiting [Recovering/Resolving]
  - Pneumonia bacterial [Recovered/Resolved]
  - Acute respiratory distress syndrome [Recovered/Resolved with Sequelae]
  - Venous thrombosis limb [Recovering/Resolving]
  - Pulmonary embolism [Recovering/Resolving]

NARRATIVE: CASE EVENT DATE: 20121115
